FAERS Safety Report 8286798-3 (Version None)
Quarter: 2012Q2

REPORT INFORMATION
  Report Type: 
  Country: None (occurrence: None)
  Receive Date: 20120416
  Receipt Date: 20120410
  Transmission Date: 20120825
  Serious: Yes (Hospitalization)
  Sender: FDA-Public Use
  Company Number: JP-BRISTOL-MYERS SQUIBB COMPANY-16214413

PATIENT
  Age: 33 Year
  Sex: Female

DRUGS (16)
  1. LOXONIN [Concomitant]
     Indication: RHEUMATOID ARTHRITIS
  2. TIZANIDINE HCL [Concomitant]
     Indication: MUSCULOSKELETAL STIFFNESS
  3. LANSOPRAZOLE [Concomitant]
  4. KETOPROFEN [Concomitant]
     Indication: RHEUMATOID ARTHRITIS
  5. METHOTREXATE [Concomitant]
     Indication: RHEUMATOID ARTHRITIS
  6. INFLIXIMAB [Concomitant]
  7. MUCOSTA [Concomitant]
     Indication: GASTRITIS PROPHYLAXIS
  8. GLAKAY [Concomitant]
  9. MEDROL [Concomitant]
     Indication: RHEUMATOID ARTHRITIS
     Route: 048
  10. MAGMITT [Concomitant]
     Indication: CONSTIPATION PROPHYLAXIS
  11. ORENCIA [Suspect]
     Indication: RHEUMATOID ARTHRITIS
     Dosage: LAST DOSE ON 5OCT11,NO OF INF:10 ALSO TAKEN 4,20APR,6MAY,2JUN,4JUL,3AUG,2SEP11,13DEC11,11JAN12
     Route: 041
     Dates: start: 20110404, end: 20111213
  12. RIMATIL [Concomitant]
     Indication: RHEUMATOID ARTHRITIS
  13. FOLIAMIN [Concomitant]
     Indication: PROPHYLAXIS
  14. ADOFEED [Concomitant]
     Indication: RHEUMATOID ARTHRITIS
  15. ISONIAZID [Concomitant]
     Indication: TUBERCULOSIS
  16. ACTONEL [Concomitant]

REACTIONS (1)
  - SUBARACHNOID HAEMORRHAGE [None]
